FAERS Safety Report 12193983 (Version 1)
Quarter: 2016Q1

REPORT INFORMATION
  Report Type: Spontaneous
  Country: US (occurrence: US)
  Receive Date: 20160321
  Receipt Date: 20160321
  Transmission Date: 20160526
  Serious: Yes (Hospitalization)
  Sender: FDA-Public Use
  Company Number: US-BEH-2016060111

PATIENT
  Sex: Female
  Weight: 56 kg

DRUGS (34)
  1. STERILE WATER FOR INJECTION [Concomitant]
     Active Substance: WATER
  2. MONTELUKAST SODIUM. [Concomitant]
     Active Substance: MONTELUKAST SODIUM
  3. ESCITALOPRAM [Concomitant]
     Active Substance: ESCITALOPRAM OXALATE
  4. PREDNISOLONE. [Concomitant]
     Active Substance: PREDNISOLONE
  5. L-M-X [Concomitant]
  6. PROVENTIL [Concomitant]
     Active Substance: ALBUTEROL
  7. DIPHENHYDRAMINE. [Concomitant]
     Active Substance: DIPHENHYDRAMINE
  8. TRIAMTERENE-HCTZ [Concomitant]
     Active Substance: HYDROCHLOROTHIAZIDE\TRIAMTERENE
  9. ADVIL [Concomitant]
     Active Substance: IBUPROFEN
  10. CALCIUM + D3 [Concomitant]
     Active Substance: CALCIUM\CHOLECALCIFEROL
  11. LEVSIN-SL [Concomitant]
  12. LANSOPRAZOLE. [Concomitant]
     Active Substance: LANSOPRAZOLE
  13. GAS-X [Concomitant]
     Active Substance: DIMETHICONE
  14. HYOSCYAMINE SULFATE. [Concomitant]
     Active Substance: HYOSCYAMINE SULFATE
  15. SINGULAIR [Concomitant]
     Active Substance: MONTELUKAST SODIUM
  16. ALBUTEROL. [Concomitant]
     Active Substance: ALBUTEROL
  17. SPIRIVA [Concomitant]
     Active Substance: TIOTROPIUM BROMIDE MONOHYDRATE
  18. POTASSIUM CHLORIDE. [Concomitant]
     Active Substance: POTASSIUM CHLORIDE
  19. HIZENTRA [Suspect]
     Active Substance: HUMAN IMMUNOGLOBULIN G
     Indication: IMMUNODEFICIENCY COMMON VARIABLE
     Route: 058
  20. NATURAL VITAMIN FOR IMMUNE SYSTEM [Concomitant]
  21. VITAMIN FOR HEART AND BONES [Concomitant]
  22. XOLAIR [Concomitant]
     Active Substance: OMALIZUMAB
  23. SYMBICORT [Concomitant]
     Active Substance: BUDESONIDE\FORMOTEROL FUMARATE DIHYDRATE
  24. PREDNISONE. [Concomitant]
     Active Substance: PREDNISONE
  25. LOSARTAN-HCTZ [Concomitant]
     Active Substance: HYDROCHLOROTHIAZIDE\LOSARTAN
  26. OXYGEN. [Concomitant]
     Active Substance: OXYGEN
  27. ACIDOPHILUS [Concomitant]
     Active Substance: LACTOBACILLUS ACIDOPHILUS
  28. HIZENTRA [Suspect]
     Active Substance: HUMAN IMMUNOGLOBULIN G
     Indication: ASTHMA
     Route: 058
  29. ATORVASTATIN [Concomitant]
     Active Substance: ATORVASTATIN
  30. EPIPEN [Concomitant]
     Active Substance: EPINEPHRINE
  31. GREEN SUPERFOOD POWDER [Concomitant]
  32. COMPLETE MULTIVITAMIN [Concomitant]
     Active Substance: VITAMINS
  33. VALACYCLOVIR [Concomitant]
     Active Substance: VALACYCLOVIR HYDROCHLORIDE
  34. LIDOCAINE/PRILOCAINE [Concomitant]

REACTIONS (2)
  - Gastric operation [Unknown]
  - Post procedural complication [Unknown]
